FAERS Safety Report 24343723 (Version 1)
Quarter: 2024Q3

REPORT INFORMATION
  Report Type: Spontaneous
  Country: US (occurrence: US)
  Receive Date: 20240920
  Receipt Date: 20240920
  Transmission Date: 20241017
  Serious: Yes (Hospitalization, Other)
  Sender: DR REDDYS
  Company Number: US-DRL-USA-SPO/USA/24/0013716

PATIENT
  Age: 71 Year

DRUGS (1)
  1. HEPARIN [Suspect]
     Active Substance: HEPARIN SODIUM
     Indication: Pancreatic neuroendocrine tumour

REACTIONS (3)
  - Heparin-induced thrombocytopenia [Unknown]
  - Venous thrombosis [Unknown]
  - Product use in unapproved indication [Unknown]
